FAERS Safety Report 15081744 (Version 1)
Quarter: 2018Q2

REPORT INFORMATION
  Report Type: Spontaneous
  Country: US (occurrence: US)
  Receive Date: 20180628
  Receipt Date: 20180628
  Transmission Date: 20180711
  Serious: No
  Sender: FDA-Public Use
  Company Number: US-PFIZER INC-2018261754

PATIENT
  Age: 6 Year
  Sex: Male

DRUGS (1)
  1. QUILLICHEW ER [Suspect]
     Active Substance: METHYLPHENIDATE HYDROCHLORIDE
     Dosage: 30 MG, 1X/DAY (1 PO QAM)
     Route: 048
     Dates: start: 20180224

REACTIONS (2)
  - Gastrointestinal disorder [Unknown]
  - Anxiety [Unknown]
